FAERS Safety Report 9628112 (Version 1)
Quarter: 2013Q4

REPORT INFORMATION
  Report Type: Spontaneous
  Country: US (occurrence: US)
  Receive Date: 20131017
  Receipt Date: 20131017
  Transmission Date: 20140711
  Serious: Yes (Hospitalization, Other)
  Sender: FDA-Public Use
  Company Number: US-ROCHE-1288416

PATIENT
  Age: 39 Year
  Sex: Male

DRUGS (2)
  1. CELLCEPT [Suspect]
     Indication: LIVER TRANSPLANT
     Route: 042
  2. CELLCEPT [Suspect]
     Route: 048

REACTIONS (3)
  - Bile duct stenosis [Unknown]
  - Acute hepatic failure [Unknown]
  - Infusion site extravasation [Not Recovered/Not Resolved]
